FAERS Safety Report 9181464 (Version 2)
Quarter: 2013Q2

REPORT INFORMATION
  Report Type: Report from Study
  Country: US (occurrence: US)
  Receive Date: 20130322
  Receipt Date: 20130402
  Transmission Date: 20140414
  Serious: Yes (Death, Life-Threatening, Hospitalization)
  Sender: FDA-Public Use
  Company Number: US-SANOFI-AVENTIS-2013SA028781

PATIENT
  Age: 66 Year
  Sex: Female
  Weight: 81.65 kg

DRUGS (12)
  1. DOCETAXEL [Suspect]
     Indication: HER-2 POSITIVE BREAST CANCER
     Route: 042
     Dates: start: 20121113
  2. DOCETAXEL [Suspect]
     Indication: HER-2 POSITIVE BREAST CANCER
     Route: 042
     Dates: start: 20121204, end: 20130214
  3. DOCETAXEL [Suspect]
     Indication: HER-2 POSITIVE BREAST CANCER
     Route: 042
     Dates: start: 20121113
  4. DOCETAXEL [Suspect]
     Indication: HER-2 POSITIVE BREAST CANCER
     Route: 042
     Dates: start: 20121204, end: 20130214
  5. ADO-TRASTUZUMAB EMTANSINE [Suspect]
     Indication: HER-2 POSITIVE BREAST CANCER
     Route: 065
     Dates: start: 20121113, end: 20130214
  6. PEGFILGRASTIM [Suspect]
     Indication: HER-2 POSITIVE BREAST CANCER
     Route: 065
     Dates: start: 20121114, end: 20130206
  7. GABAPENTIN [Concomitant]
     Dates: start: 20121204
  8. TRAMADOL [Concomitant]
     Dates: start: 20121204
  9. HYDROCORTISONE [Concomitant]
     Dosage: STRENGTH: 2.5 %, LOTION
     Route: 061
     Dates: start: 20130102, end: 20130211
  10. PROMETHAZINE [Concomitant]
     Dates: start: 20121112, end: 20130211
  11. CIPROFLOXACIN HYDROCHLORIDE [Concomitant]
     Dates: start: 20121119, end: 20121119
  12. DOXYCYCLINE [Concomitant]
     Dates: start: 20121119, end: 20121121

REACTIONS (6)
  - Respiratory failure [Fatal]
  - Pneumonitis [Fatal]
  - Febrile neutropenia [Recovered/Resolved]
  - Viral infection [Recovered/Resolved]
  - Confusional state [Recovered/Resolved]
  - Dehydration [Recovered/Resolved]
